FAERS Safety Report 6013640-3 (Version None)
Quarter: 2008Q4

REPORT INFORMATION
  Report Type: 
  Country: None (occurrence: None)
  Receive Date: 20081219
  Receipt Date: 20081210
  Transmission Date: 20090506
  Serious: Yes (Death)
  Sender: FDA-Public Use
  Company Number: JP-ROCHE-603427

PATIENT
  Age: 62 Year
  Sex: Male

DRUGS (5)
  1. ROCEPHIN [Suspect]
     Indication: MENINGITIS BACTERIAL
     Dosage: ROUTE INJECTABLE (NOS).
     Route: 050
     Dates: start: 20080705, end: 20080701
  2. AMPICILLIN SODIUM/SULBACTAM SODIUM [Concomitant]
     Dosage: ROUTE INJECTABLE (NOS).
     Route: 050
     Dates: start: 20080705, end: 20080705
  3. ACYCLOVIR [Concomitant]
     Dosage: ROUTE INJECTABLE (NOS).
     Route: 050
     Dates: start: 20080705, end: 20080705
  4. VANCOMYCIN HYDROCHLORIDE [Concomitant]
     Dosage: ROUTE INJECTABLE (NOS).
     Route: 050
     Dates: start: 20080705, end: 20080701
  5. DECADRON [Concomitant]
     Dosage: ROUTE INJECTABLE (NOS).
     Route: 050
     Dates: start: 20080701, end: 20080701

REACTIONS (2)
  - PERITONITIS [None]
  - SEPSIS [None]
